FAERS Safety Report 9201233 (Version 3)
Quarter: 2013Q2

REPORT INFORMATION
  Report Type: Report from Study
  Country: PH (occurrence: PH)
  Receive Date: 20130401
  Receipt Date: 20130610
  Transmission Date: 20140414
  Serious: Yes (Death)
  Sender: FDA-Public Use
  Company Number: PHHY2013PH031093

PATIENT
  Age: 44 Year
  Sex: Male

DRUGS (2)
  1. GLIVEC [Suspect]
     Indication: CHRONIC MYELOID LEUKAEMIA
     Dosage: 300 MG
  2. GLIVEC [Suspect]
     Dosage: 600 MG

REACTIONS (4)
  - Death [Fatal]
  - Platelet count increased [Unknown]
  - White blood cell count increased [Unknown]
  - No therapeutic response [Unknown]
